FAERS Safety Report 20614543 (Version 3)
Quarter: 2022Q2

REPORT INFORMATION
  Report Type: Spontaneous
  Country: US (occurrence: US)
  Receive Date: 20220321
  Receipt Date: 20220421
  Transmission Date: 20220721
  Serious: Yes (Hospitalization)
  Sender: FDA-Public Use
  Company Number: US-SPECGX-T202200347

PATIENT
  Age: 71 Year
  Sex: Female
  Weight: 59 kg

DRUGS (10)
  1. DEXTROAMPHETAMINE SULFATE [Suspect]
     Active Substance: DEXTROAMPHETAMINE SULFATE
     Indication: Depression
     Dosage: 4 DOSAGE FORM, QD
     Route: 065
     Dates: start: 1998, end: 20210708
  2. DEXTROAMPHETAMINE SULFATE [Suspect]
     Active Substance: DEXTROAMPHETAMINE SULFATE
     Dosage: 10 MILLIGRAM, QID
     Route: 065
     Dates: start: 202111
  3. FENTANYL TRANSDERMAL SYSTEM [Suspect]
     Active Substance: FENTANYL
     Indication: Pain
     Dosage: 100 MCG
     Route: 062
     Dates: start: 1990, end: 2020
  4. DULOXETINE [Concomitant]
     Active Substance: DULOXETINE
     Indication: Major depression
     Dosage: UNK
     Route: 065
     Dates: start: 1990
  5. ABILIFY [Concomitant]
     Active Substance: ARIPIPRAZOLE
     Indication: Major depression
     Dosage: UNK
     Route: 065
     Dates: start: 1990
  6. GABAPENTIN [Concomitant]
     Active Substance: GABAPENTIN
     Indication: Major depression
     Dosage: UNK
     Route: 065
     Dates: start: 1990
  7. KLONOPIN [Concomitant]
     Active Substance: CLONAZEPAM
     Indication: Major depression
     Dosage: UNK
     Route: 065
     Dates: start: 1990
  8. TRAZODONE [Concomitant]
     Active Substance: TRAZODONE HYDROCHLORIDE
     Indication: Major depression
     Dosage: UNK
     Route: 065
     Dates: start: 1990
  9. MIRTAZAPINE [Concomitant]
     Active Substance: MIRTAZAPINE
     Indication: Major depression
     Dosage: UNK
     Route: 065
     Dates: start: 1990
  10. LAMICTAL [Concomitant]
     Active Substance: LAMOTRIGINE
     Indication: Major depression
     Dosage: UNK
     Route: 065
     Dates: start: 1990

REACTIONS (4)
  - Suicidal behaviour [Recovered/Resolved]
  - Somnolence [Not Recovered/Not Resolved]
  - Asthenia [Not Recovered/Not Resolved]
  - Drug ineffective for unapproved indication [Not Recovered/Not Resolved]

NARRATIVE: CASE EVENT DATE: 20210708
